FAERS Safety Report 17466312 (Version 3)
Quarter: 2020Q2

REPORT INFORMATION
  Report Type: Report from Study
  Country: None (occurrence: CN)
  Receive Date: 20200227
  Receipt Date: 20200622
  Transmission Date: 20200713
  Serious: Yes (Hospitalization)
  Sender: FDA-Public Use
  Company Number: CN-CELLTRION, INC.-2080998

PATIENT
  Age: 45 Year
  Sex: Male
  Weight: 67 kg

DRUGS (5)
  1. METHOTREXATE. [Concomitant]
     Active Substance: METHOTREXATE
  2. ISONIAZID. [Concomitant]
     Active Substance: ISONIAZID
  3. PARACETAMOL [Concomitant]
     Active Substance: ACETAMINOPHEN
  4. TRUXIMA [Suspect]
     Active Substance: RITUXIMAB-ABBS
  5. RIFAMPICIN [Concomitant]
     Active Substance: RIFAMPIN

REACTIONS (2)
  - Pyrexia [None]
  - Rheumatoid arthritis [None]
